FAERS Safety Report 9937958 (Version 3)
Quarter: 2014Q2

REPORT INFORMATION
  Report Type: Spontaneous
  Country: US (occurrence: US)
  Receive Date: 20140303
  Receipt Date: 20140612
  Transmission Date: 20141212
  Serious: No
  Sender: FDA-Public Use
  Company Number: US-BIOGENIDEC-2014BI017092

PATIENT
  Age: 41 Year
  Sex: Female

DRUGS (24)
  1. TECFIDERA [Suspect]
     Indication: MULTIPLE SCLEROSIS
     Route: 048
     Dates: start: 20131206
  2. AMBIEN [Concomitant]
  3. BACLOFEN [Concomitant]
  4. BENADRYL ALLERGY [Concomitant]
  5. CORGARD [Concomitant]
  6. CYMBALTA [Concomitant]
  7. IMITREX [Concomitant]
  8. KLONOPIN [Concomitant]
  9. LEVETIRACETAM ER [Concomitant]
  10. MOTRIN IB [Concomitant]
  11. NEURONTIN [Concomitant]
  12. PRAVACHAL [Concomitant]
  13. PRILOSEC [Concomitant]
  14. SYNTHROID [Concomitant]
  15. TOPAMAX [Concomitant]
  16. VITAMIN B12 [Concomitant]
  17. VITAMIN D-3 [Concomitant]
  18. ZANAFLEX [Concomitant]
  19. IBUPROFEN [Concomitant]
  20. FERROUS SULFATE [Concomitant]
  21. LEVAQUIN [Concomitant]
  22. IBUPROFEN [Concomitant]
  23. KEPPRA [Concomitant]
  24. TIZANIDINE HCL [Concomitant]

REACTIONS (17)
  - Nasopharyngitis [Unknown]
  - Hyperhidrosis [Unknown]
  - Fatigue [Unknown]
  - Menstruation irregular [Unknown]
  - Vertigo [Unknown]
  - Headache [Unknown]
  - Blood count abnormal [Unknown]
  - Sinusitis [Unknown]
  - Weight decreased [Unknown]
  - Chills [Unknown]
  - Oropharyngeal pain [Unknown]
  - Pyrexia [Unknown]
  - Anaemia [Unknown]
  - Nausea [Unknown]
  - White blood cell count decreased [Unknown]
  - Diarrhoea [Unknown]
  - Hot flush [Unknown]
